FAERS Safety Report 24775378 (Version 2)
Quarter: 2025Q3

REPORT INFORMATION
  Report Type: Report from Study
  Country: US (occurrence: US)
  Receive Date: 20241226
  Receipt Date: 20250918
  Transmission Date: 20251021
  Serious: Yes (Other)
  Sender: AMNEAL
  Company Number: US-AMNEAL PHARMACEUTICALS-2024-AMRX-04553

PATIENT
  Sex: Female
  Weight: 55.782 kg

DRUGS (6)
  1. CARBIDOPA\LEVODOPA [Suspect]
     Active Substance: CARBIDOPA\LEVODOPA
     Indication: Parkinson^s disease
     Dosage: 1 CAPSULES, QID Q 4 HRS. 7AM, 11AM, 3PM, 7PM
     Route: 048
  2. CARBIDOPA\LEVODOPA [Suspect]
     Active Substance: CARBIDOPA\LEVODOPA
     Route: 048
     Dates: start: 20241205
  3. REQUIP [Concomitant]
     Active Substance: ROPINIROLE HYDROCHLORIDE
     Indication: Product used for unknown indication
     Dosage: 1 MILLIGRAM, QID
     Route: 048
  4. GOCOVRI [Concomitant]
     Active Substance: AMANTADINE
     Indication: Product used for unknown indication
     Dosage: 137 MG; 2 CAPSULES, BEDTIME
     Route: 048
  5. PROZAC [Concomitant]
     Active Substance: FLUOXETINE HYDROCHLORIDE
     Indication: Product used for unknown indication
     Dosage: 10 MILLIGRAM, 1 /DAY
     Route: 048
  6. DEMANNOSE [Concomitant]
     Active Substance: DEMANNOSE
     Indication: Product used for unknown indication
     Dosage: 500 MILLIGRAM, 1 /DAY
     Route: 048

REACTIONS (20)
  - Parkinson^s disease psychosis [Unknown]
  - Tremor [Unknown]
  - Nervousness [Unknown]
  - Dysphagia [Unknown]
  - Posture abnormal [Unknown]
  - Balance disorder [Unknown]
  - Rapid eye movement sleep behaviour disorder [Unknown]
  - Memory impairment [Unknown]
  - Fall [Unknown]
  - Muscular weakness [Unknown]
  - Visual impairment [Unknown]
  - Tinnitus [Unknown]
  - Neck pain [Unknown]
  - Back pain [Unknown]
  - Dysphonia [Unknown]
  - Dizziness [Unknown]
  - Hallucination [Unknown]
  - Dyskinesia [Unknown]
  - On and off phenomenon [Unknown]
  - Anxiety [Unknown]
